FAERS Safety Report 4478036-4 (Version None)
Quarter: 2004Q3

REPORT INFORMATION
  Report Type: 
  Country: None (occurrence: None)
  Receive Date: 20040923
  Receipt Date: 20040614
  Transmission Date: 20050211
  Serious: No
  Sender: FDA-Public Use
  Company Number: USA040670119

PATIENT
  Age: 46 Year
  Sex: Female

DRUGS (11)
  1. FORTEO [Suspect]
     Indication: OSTEOPOROSIS
     Dates: start: 20040301
  2. METHOTREXATE [Concomitant]
  3. CELEBREX [Concomitant]
  4. NEXIUM [Concomitant]
  5. PREDNISONE [Concomitant]
  6. SINGULAIR [Concomitant]
  7. PRAVACHOL [Concomitant]
  8. FOLIC ACID [Concomitant]
  9. CALICUM [Concomitant]
  10. HYDROCODONE [Concomitant]
  11. COUGH SYRUP [Concomitant]

REACTIONS (4)
  - COLD SWEAT [None]
  - INJECTION SITE ERYTHEMA [None]
  - INJECTION SITE HAEMORRHAGE [None]
  - NAUSEA [None]
